FAERS Safety Report 11867647 (Version 3)
Quarter: 2016Q1

REPORT INFORMATION
  Report Type: Spontaneous
  Country: JP (occurrence: JP)
  Receive Date: 20151224
  Receipt Date: 20160120
  Transmission Date: 20160526
  Serious: Yes (Other)
  Sender: FDA-Public Use
  Company Number: JP-009507513-1512JPN002696

PATIENT
  Age: 66 Year
  Sex: Female

DRUGS (18)
  1. VASOLAN [Concomitant]
     Active Substance: VERAPAMIL HYDROCHLORIDE
     Dosage: 80 MG, QD
     Route: 048
     Dates: start: 20151118, end: 20151130
  2. MICARDIS [Concomitant]
     Active Substance: TELMISARTAN
     Dosage: 20 MG, QD
     Route: 048
     Dates: end: 20151113
  3. PLAVIX [Concomitant]
     Active Substance: CLOPIDOGREL BISULFATE
     Dosage: 75 MG, QD
     Route: 048
  4. IRBETAN [Concomitant]
     Active Substance: IRBESARTAN
     Dosage: 200 MG, QD
     Route: 048
     Dates: start: 20151118
  5. MEPTIN AIR [Concomitant]
     Active Substance: PROCATEROL HYDROCHLORIDE
     Dosage: UNK, PRN. ROUTE : INHALATIONAL
     Route: 055
     Dates: start: 20151026, end: 20151030
  6. HORNEL [Concomitant]
     Dosage: 0.3 MICROGRAM, QD
     Route: 048
  7. FEBURIC [Concomitant]
     Active Substance: FEBUXOSTAT
     Dosage: 10 MG, QD
     Route: 048
  8. FOSRENOL [Concomitant]
     Active Substance: LANTHANUM CARBONATE
     Dosage: 1 G, QD
     Route: 048
  9. NASONEX [Concomitant]
     Active Substance: MOMETASONE FUROATE
     Dosage: 100 MICROGRAM, QD
     Route: 045
     Dates: start: 20151028, end: 20151104
  10. ARTIST [Concomitant]
     Active Substance: CARVEDILOL
     Dosage: 2.50 MG, QD
     Route: 048
     Dates: end: 20151111
  11. MOSAPRIDE CITRATE [Concomitant]
     Active Substance: MOSAPRIDE CITRATE
     Dosage: 7.5 MG, QD
     Route: 048
  12. RINDERON V [Concomitant]
     Active Substance: BETAMETHASONE VALERATE
     Dosage: UNK
     Route: 048
     Dates: start: 20151026, end: 20151105
  13. NEXIUM [Concomitant]
     Active Substance: ESOMEPRAZOLE MAGNESIUM
     Dosage: 10 MG, QD
     Route: 048
  14. MONTELUKAST [Suspect]
     Active Substance: MONTELUKAST SODIUM
     Indication: ASTHMA
     Dosage: 10 MG, SID
     Route: 048
     Dates: start: 20151026, end: 20151119
  15. CRESTOR [Concomitant]
     Active Substance: ROSUVASTATIN CALCIUM
     Dosage: 5 MG, QD
     Route: 048
  16. ASMANEX [Concomitant]
     Active Substance: MOMETASONE FUROATE
     Indication: ASTHMA
     Dosage: 800 MICROGRAM, QD. ROUTE: INHALATIONAL
     Route: 055
     Dates: start: 20151031
  17. BAYASPIRIN [Concomitant]
     Active Substance: ASPIRIN
     Dosage: 100 MG, QD
     Route: 048
  18. MICARDIS [Concomitant]
     Active Substance: TELMISARTAN
     Dosage: 40 MG, QD
     Route: 048
     Dates: start: 20151114, end: 20151118

REACTIONS (2)
  - Neutropenia [Recovered/Resolved]
  - Thrombocytopenia [Recovering/Resolving]

NARRATIVE: CASE EVENT DATE: 20151118
